FAERS Safety Report 9801248 (Version 4)
Quarter: 2019Q3

REPORT INFORMATION
  Report Type: Spontaneous
  Country: TR (occurrence: TR)
  Receive Date: 20140107
  Receipt Date: 20190815
  Transmission Date: 20191005
  Serious: Yes (Hospitalization, Other)
  Sender: FDA-Public Use
  Company Number: TR-TAKEDA-THQ2013A05428

PATIENT
  Age: 64 Year
  Sex: Female

DRUGS (2)
  1. LANSOPRAZOLE. [Suspect]
     Active Substance: LANSOPRAZOLE
     Indication: PRODUCT USED FOR UNKNOWN INDICATION
     Dosage: 30 MILLIGRAM, QD, 30 MG, 1X/DAY
     Route: 065
  2. PHENYTOIN SODIUM. [Concomitant]
     Active Substance: PHENYTOIN SODIUM
     Indication: SEIZURE PROPHYLAXIS
     Dosage: 600 MILLIGRAM, QD, 600 MG, 1X/DAY

REACTIONS (3)
  - Nikolsky^s sign [Recovered/Resolved]
  - Bacterial infection [Recovered/Resolved]
  - Toxic epidermal necrolysis [Recovered/Resolved]
